FAERS Safety Report 4679288-8 (Version None)
Quarter: 2005Q2

REPORT INFORMATION
  Report Type: 
  Country: None (occurrence: None)
  Receive Date: 20050531
  Receipt Date: 20050519
  Transmission Date: 20051028
  Serious: Yes (Death)
  Sender: FDA-Public Use
  Company Number: BRO-008692

PATIENT
  Age: 87 Year
  Sex: Female

DRUGS (2)
  1. IOPAMIDOL/IOPAMIRON 370 (BATCH # (S): 51773) [Suspect]
     Indication: COMPUTERISED TOMOGRAM
     Dosage: 100 ML; IV
     Route: 042
     Dates: start: 20050511, end: 20050511
  2. IOPAMIDOL/IOPAMIRON 370 (BATCH # (S): 51773) [Suspect]
     Indication: PULMONARY EMBOLISM
     Dosage: 100 ML; IV
     Route: 042
     Dates: start: 20050511, end: 20050511

REACTIONS (3)
  - CONDITION AGGRAVATED [None]
  - POST PROCEDURAL COMPLICATION [None]
  - SHOCK [None]
